FAERS Safety Report 5801976-8 (Version None)
Quarter: 2008Q3

REPORT INFORMATION
  Report Type: 
  Country: None (occurrence: None)
  Receive Date: 20080702
  Receipt Date: 20080620
  Transmission Date: 20090109
  Serious: Yes (Hospitalization, Other)
  Sender: FDA-Public Use
  Company Number: DSA_31905_2008

PATIENT
  Sex: Male

DRUGS (4)
  1. LORAZEPAM [Suspect]
     Indication: DRUG USE FOR UNKNOWN INDICATION
     Dosage: (30 MG 1X, 20 - 30 MG ORAL)
     Route: 048
     Dates: start: 20080330, end: 20080330
  2. LORAZEPAM [Suspect]
     Indication: DRUG USE FOR UNKNOWN INDICATION
     Dosage: (1 MG QD ORAL)
     Route: 048
     Dates: start: 20080201
  3. ALCOHOL (ALCOHOL - ETHANOL) [Suspect]
     Dosage: (ORAL)
     Route: 048
     Dates: start: 20080330, end: 20080330
  4. CYMBALTA [Concomitant]

REACTIONS (17)
  - ABNORMAL BEHAVIOUR [None]
  - ACCIDENTAL OVERDOSE [None]
  - ALCOHOL USE [None]
  - ANXIETY [None]
  - ASTHENIA [None]
  - CARDIOVASCULAR DISORDER [None]
  - DRUG WITHDRAWAL SYNDROME [None]
  - FEELING ABNORMAL [None]
  - HEADACHE [None]
  - INAPPROPRIATE SCHEDULE OF DRUG ADMINISTRATION [None]
  - MUSCLE SPASMS [None]
  - MUSCULAR WEAKNESS [None]
  - MUSCULOSKELETAL PAIN [None]
  - MYALGIA [None]
  - RESTLESSNESS [None]
  - SUICIDAL IDEATION [None]
  - TREMOR [None]
